FAERS Safety Report 26067534 (Version 1)
Quarter: 2025Q4

REPORT INFORMATION
  Report Type: Other
  Country: US (occurrence: None)
  Receive Date: 20251120
  Receipt Date: 20251120
  Transmission Date: 20260118
  Serious: No
  Sender: APOTEX
  Company Number: US-APOTEX-2025AP032778

PATIENT
  Age: 9 Year
  Sex: Female

DRUGS (4)
  1. OMEPRAZOLE [Suspect]
     Active Substance: OMEPRAZOLE
     Indication: Laryngeal stenosis
     Dosage: 40 MILLIGRAM, QD
     Route: 065
  2. FLUTICASONE [Concomitant]
     Active Substance: FLUTICASONE
     Indication: Laryngeal stenosis
     Dosage: 220 MICROGRAM, BID
  3. SULFAMETHOXAZOLE\TRIMETHOPRIM [Concomitant]
     Active Substance: SULFAMETHOXAZOLE\TRIMETHOPRIM
     Indication: Laryngeal stenosis
     Dosage: UNK DOUBLE STRENGTH
     Route: 065
  4. MITOMYCIN C [Concomitant]
     Active Substance: MITOMYCIN
     Indication: Product used for unknown indication
     Dosage: UNK 0.5 MG/ML APPLIED FOR 2 MINUTES

REACTIONS (2)
  - Gastrointestinal disorder [Unknown]
  - Gastrooesophageal reflux disease [Unknown]
